FAERS Safety Report 13304710 (Version 2)
Quarter: 2018Q2

REPORT INFORMATION
  Report Type: Spontaneous
  Country: JP (occurrence: JP)
  Receive Date: 20170308
  Receipt Date: 20180629
  Transmission Date: 20180711
  Serious: Yes (Life-Threatening, Hospitalization, Other)
  Sender: FDA-Public Use
  Company Number: PHHY2017JP031844

PATIENT
  Age: 71 Year
  Sex: Male

DRUGS (3)
  1. METFORMIN [Suspect]
     Active Substance: METFORMIN HYDROCHLORIDE
     Indication: TYPE 2 DIABETES MELLITUS
     Dosage: 500 MG, QD
     Route: 065
  2. RINGER ACETAT-GLUCOSAE [Concomitant]
     Indication: ENTEROCOLITIS
     Dosage: UNK
     Route: 042
  3. RINGER ACETAT-GLUCOSAE [Concomitant]
     Indication: DEHYDRATION

REACTIONS (12)
  - Abdominal pain [Unknown]
  - Somnolence [Unknown]
  - Lactic acidosis [Recovering/Resolving]
  - Decreased appetite [Unknown]
  - Shock [Recovering/Resolving]
  - Nausea [Unknown]
  - Sepsis [Recovering/Resolving]
  - Hypotension [Unknown]
  - Vomiting [Unknown]
  - Dyspnoea [Unknown]
  - Tachypnoea [Unknown]
  - Renal failure [Unknown]
